FAERS Safety Report 4338003-8 (Version None)
Quarter: 2004Q2

REPORT INFORMATION
  Report Type: 
  Country: None (occurrence: None)
  Receive Date: 20040408
  Receipt Date: 20040329
  Transmission Date: 20050107
  Serious: Yes (Other)
  Sender: FDA-Public Use
  Company Number: DK-SHR-04-023364

PATIENT
  Sex: 0

DRUGS (2)
  1. FLUDARA [Suspect]
     Dosage: INTRAVENOUS
     Route: 042
  2. BLOOD TRANSUFSION, AUXILIARY PRODUCTS [Concomitant]

REACTIONS (2)
  - HAEMOLYSIS [None]
  - TRANSFUSION REACTION [None]
